FAERS Safety Report 18182644 (Version 1)
Quarter: 2020Q3

REPORT INFORMATION
  Report Type: Spontaneous
  Country: US (occurrence: US)
  Receive Date: 20200821
  Receipt Date: 20200821
  Transmission Date: 20201103
  Serious: Yes (Death, Hospitalization, Other)
  Sender: FDA-Public Use
  Company Number: US-PURDUE-USA-2020-0161809

PATIENT
  Sex: Male

DRUGS (2)
  1. OXYCODONE HYDROCHLORIDE (SIMILAR TO NDA 22?272) [Suspect]
     Active Substance: OXYCODONE HYDROCHLORIDE
     Indication: PAIN
     Dosage: UNK
     Route: 048
     Dates: start: 1997, end: 20191006
  2. FENTANYL. [Suspect]
     Active Substance: FENTANYL
     Indication: PAIN
     Dosage: UNK
     Route: 062
     Dates: start: 1997, end: 20191006

REACTIONS (16)
  - Fatigue [Unknown]
  - Drug dependence [Unknown]
  - Sexual dysfunction [Unknown]
  - Pruritus [Unknown]
  - Hospitalisation [Unknown]
  - Pain [Unknown]
  - Somnolence [Unknown]
  - Anxiety [Unknown]
  - Drug ineffective [Unknown]
  - Anger [Unknown]
  - Obsessive thoughts [Unknown]
  - Restlessness [Unknown]
  - Death [Fatal]
  - Initial insomnia [Unknown]
  - Agitation [Unknown]
  - Constipation [Unknown]

NARRATIVE: CASE EVENT DATE: 20191006
